FAERS Safety Report 6446952-X (Version None)
Quarter: 2009Q4

REPORT INFORMATION
  Report Type: 
  Country: None (occurrence: None)
  Receive Date: 20091119
  Receipt Date: 20091106
  Transmission Date: 20100525
  Serious: No
  Sender: FDA-Public Use
  Company Number: US-ROXANE LABORATORIES, INC.-2009-RO-01159RO

PATIENT
  Age: 53 Year
  Sex: Female

DRUGS (5)
  1. AZATHIOPRINE [Suspect]
     Indication: SYSTEMIC LUPUS ERYTHEMATOSUS
     Dosage: 150 MG
     Route: 048
     Dates: end: 20091104
  2. DEPAKOTE [Concomitant]
     Indication: CONVULSION
  3. ZANTAC [Concomitant]
  4. ZOLOFT [Concomitant]
  5. PLAQUENIL [Concomitant]

REACTIONS (6)
  - BACK PAIN [None]
  - CHROMATURIA [None]
  - DIARRHOEA [None]
  - MUSCLE SPASMS [None]
  - PAIN [None]
  - VAGINAL HAEMORRHAGE [None]
